FAERS Safety Report 7957461-0 (Version None)
Quarter: 2011Q4

REPORT INFORMATION
  Report Type: 
  Country: None (occurrence: None)
  Receive Date: 20111205
  Receipt Date: 20111129
  Transmission Date: 20120403
  Serious: Yes (Life-Threatening, Hospitalization, Other)
  Sender: FDA-Public Use
  Company Number: US-ASTRAZENECA-2011SE27091

PATIENT
  Age: 60 Year
  Sex: Female

DRUGS (4)
  1. SEROQUEL [Suspect]
     Route: 048
  2. SIMVASTATIN [Concomitant]
     Indication: BLOOD CHOLESTEROL ABNORMAL
  3. SEROQUEL [Suspect]
     Dosage: ONE HALF TO TWO TABLETS EVERY NIGHT AT BEDTIME
     Route: 048
     Dates: start: 20111115
  4. SEROQUEL [Suspect]
     Route: 048
     Dates: start: 20110501

REACTIONS (8)
  - CARDIAC ARREST [None]
  - WRONG TECHNIQUE IN DRUG USAGE PROCESS [None]
  - CHEST PAIN [None]
  - MENTAL DISORDER [None]
  - MYOCARDIAL INFARCTION [None]
  - BLOOD CHOLESTEROL INCREASED [None]
  - GANGRENE [None]
  - WEIGHT DECREASED [None]
